FAERS Safety Report 7850008-9 (Version None)
Quarter: 2011Q4

REPORT INFORMATION
  Report Type: 
  Country: None (occurrence: None)
  Receive Date: 20111026
  Receipt Date: 20111024
  Transmission Date: 20120403
  Serious: Yes (Death, Hospitalization)
  Sender: FDA-Public Use
  Company Number: AU-B.I. PHARMACEUTICALS,INC./RIDGEFIELD-2011-AU-01778AU

PATIENT
  Sex: Female

DRUGS (11)
  1. PRADAXA [Suspect]
     Indication: ATRIAL FIBRILLATION
  2. CALCIUM CARBONATE [Concomitant]
     Dosage: ONE DAILY
  3. OMEPRAZOLE [Concomitant]
     Dosage: 20 MG
  4. FUROSEMIDE [Concomitant]
     Route: 042
  5. SPIRONOLACTONE [Concomitant]
     Dosage: 12.5 MG
  6. PRADAXA [Suspect]
     Indication: CEREBROVASCULAR ACCIDENT PROPHYLAXIS
     Dosage: 220 MG
     Dates: start: 20110714
  7. LYRICA [Concomitant]
     Dosage: ONE OR TWO DAILY
  8. DILTIAZEM HCL [Concomitant]
  9. AVAPRO [Concomitant]
  10. FUROSEMIDE [Concomitant]
     Dosage: 20 MG
  11. NITROGLYCERIN [Concomitant]

REACTIONS (3)
  - IRON DEFICIENCY [None]
  - ACETABULUM FRACTURE [None]
  - FALL [None]
